FAERS Safety Report 7752720-9 (Version None)
Quarter: 2011Q3

REPORT INFORMATION
  Report Type: 
  Country: None (occurrence: None)
  Receive Date: 20110915
  Receipt Date: 20110906
  Transmission Date: 20111222
  Serious: Yes (Hospitalization)
  Sender: FDA-Public Use
  Company Number: US-ROCHE-801719

PATIENT
  Sex: Female
  Weight: 117.9 kg

DRUGS (9)
  1. TEMOZOLOMIDE [Suspect]
     Route: 048
     Dates: start: 20110501
  2. KEPPRA [Concomitant]
  3. TEMOZOLOMIDE [Suspect]
     Dosage: DATE OF LAST DOSE:14 AUGUST 2011.
     Route: 048
     Dates: start: 20110601
  4. TYLENOL-500 [Concomitant]
     Dosage: AS NEEDED
  5. BEVACIZUMAB [Suspect]
     Dosage: FREQUENCY REPORTED: X1.
     Route: 042
     Dates: start: 20110601
  6. ONDANSETRON [Concomitant]
     Dosage: AS NEEDED
  7. BEVACIZUMAB [Suspect]
     Indication: GLIOBLASTOMA MULTIFORME
     Dosage: DATE OF LAST DOSE:10 AUGUST 2011.
     Route: 042
     Dates: start: 20100823, end: 20100827
  8. TEMOZOLOMIDE [Suspect]
     Indication: GLIOBLASTOMA MULTIFORME
     Dosage: FREQUENCY: X 5 DAYS
     Route: 048
     Dates: start: 20100823
  9. DECADRON [Concomitant]

REACTIONS (1)
  - STATUS EPILEPTICUS [None]
